FAERS Safety Report 8772356 (Version 1)
Quarter: 2012Q4

REPORT INFORMATION
  Report Type: 
  Country: CH (occurrence: CH)
  Receive Date: 20120906
  Receipt Date: 20120906
  Transmission Date: 20130627
  Serious: Yes (Other)
  Sender: FDA-Public Use
  Company Number: CH-AMGEN-CHESP2012054985

PATIENT
  Age: 16 Year
  Sex: Female

DRUGS (1)
  1. ENBREL [Suspect]
     Indication: PSORIASIS
     Dosage: 50 mg, weekly
     Route: 058
     Dates: start: 20120321

REACTIONS (4)
  - Skin reaction [Recovered/Resolved]
  - Pain [Unknown]
  - Fear [Unknown]
  - Type III immune complex mediated reaction [Recovered/Resolved]
